FAERS Safety Report 25414204 (Version 3)
Quarter: 2025Q4

REPORT INFORMATION
  Report Type: Spontaneous
  Country: US (occurrence: US)
  Receive Date: 20250609
  Receipt Date: 20251125
  Transmission Date: 20260117
  Serious: Yes (Other)
  Sender: PFIZER
  Company Number: US-PFIZER INC-PV202300199397

PATIENT
  Age: 78 Year
  Sex: Female
  Weight: 79.819 kg

DRUGS (6)
  1. IBRANCE [Suspect]
     Active Substance: PALBOCICLIB
     Indication: Breast cancer female
     Dosage: DAILY FOR 2 WEEKS, THEN 2 WEEKS OFF
     Route: 048
  2. IBRANCE [Suspect]
     Active Substance: PALBOCICLIB
     Dosage: DAILY, TAKE 3 DAYS ON WITH FOOD AND 4 DAYS OFF EACH WEEK
     Route: 048
  3. IBRANCE [Suspect]
     Active Substance: PALBOCICLIB
     Dosage: DAILY, 3 DAYS ON, 3 DAYS OFF THEN 4 DAYS ON 4 DAYS OFF
     Route: 048
  4. IBRANCE [Suspect]
     Active Substance: PALBOCICLIB
     Dosage: FOR 3 DAYS ON WITH FOOD AND 4 DAYS OFF, REPEAT
     Route: 048
  5. IBRANCE [Suspect]
     Active Substance: PALBOCICLIB
     Dosage: DAILY FOR 3 DAYS THEN OFF FOR 7 DAYS
  6. IBRANCE [Suspect]
     Active Substance: PALBOCICLIB
     Dosage: DAILY FOR 21 DAYS AND 7 DAYS OFF
     Route: 048

REACTIONS (5)
  - Breast cancer female [Unknown]
  - Malignant neoplasm progression [Unknown]
  - Joint dislocation [Unknown]
  - Off label use [Unknown]
  - Product use issue [Unknown]
